FAERS Safety Report 5734253-4 (Version None)
Quarter: 2008Q2

REPORT INFORMATION
  Report Type: 
  Country: None (occurrence: None)
  Receive Date: 20080512
  Receipt Date: 20080425
  Transmission Date: 20081010
  Serious: Yes (Other)
  Sender: FDA-Public Use
  Company Number: BR-BAYER-200813719LA

PATIENT
  Age: 42 Year
  Sex: Male

DRUGS (4)
  1. BETAFERON [Suspect]
     Indication: MULTIPLE SCLEROSIS
     Dosage: UNIT DOSE: 1.2 ML
     Route: 058
     Dates: start: 20080201, end: 20080308
  2. AMITRIL [Concomitant]
     Indication: ANXIETY
     Dosage: TOTAL DAILY DOSE: 25 MG  UNIT DOSE: 25 MG
     Route: 048
     Dates: start: 20080301, end: 20080301
  3. PONDERA [Concomitant]
     Indication: ANXIETY
     Dosage: TOTAL DAILY DOSE: 30 MG  UNIT DOSE: 30 MG
     Route: 048
     Dates: start: 20080101, end: 20080301
  4. ACETAMINOPHEN [Concomitant]
     Indication: DRUG USE FOR UNKNOWN INDICATION
     Route: 048

REACTIONS (3)
  - DYSPEPSIA [None]
  - HEPATITIS [None]
  - OCULAR ICTERUS [None]
